FAERS Safety Report 15949151 (Version 1)
Quarter: 2019Q1

REPORT INFORMATION
  Report Type: Spontaneous
  Country: US (occurrence: US)
  Receive Date: 20190211
  Receipt Date: 20190211
  Transmission Date: 20190417
  Serious: Yes (Death, Hospitalization)
  Sender: FDA-Public Use
  Company Number: US-MYLANLABS-2019M1011866

PATIENT
  Age: 58 Year
  Sex: Female

DRUGS (11)
  1. OXANDROLONE. [Suspect]
     Active Substance: OXANDROLONE
     Indication: PRODUCT USED FOR UNKNOWN INDICATION
     Dosage: FROM PBD 20 TO PBD 73
     Route: 065
  2. ANIDULAFUNGIN [Suspect]
     Active Substance: ANIDULAFUNGIN
     Indication: MUCORMYCOSIS
     Dosage: FROM PBD 43 TO PBD 72
     Route: 065
  3. ANIDULAFUNGIN [Suspect]
     Active Substance: ANIDULAFUNGIN
     Indication: SYSTEMIC CANDIDA
  4. HYDROCORTISONE. [Suspect]
     Active Substance: HYDROCORTISONE
     Indication: SEPTIC SHOCK
     Dosage: STRESS DOSE; FROM PBD 35 TO PBD 74
     Route: 065
  5. ISAVUCONAZOLE [Suspect]
     Active Substance: ISAVUCONAZOLE
     Indication: MUCORMYCOSIS
     Route: 065
  6. MEROPENEM. [Concomitant]
     Active Substance: MEROPENEM
     Indication: ENTEROBACTER INFECTION
     Route: 065
  7. AMPHOTERICIN B LIPID COMPLEX [Suspect]
     Active Substance: AMPHOTERICIN B
     Indication: MUCORMYCOSIS
     Dosage: FROM PBD 43 TO PBD 72
     Route: 065
  8. AMIKACIN. [Concomitant]
     Active Substance: AMIKACIN
     Indication: ENTEROBACTER INFECTION
     Route: 065
  9. HEPARIN [Suspect]
     Active Substance: HEPARIN SODIUM
     Indication: PULMONARY EMBOLISM
     Dosage: LOW-INTENSITY HEPARIN DRIP FOR APPROXIMATELY 12 HOURS
     Route: 041
  10. AMPHOTERICIN B LIPID COMPLEX [Suspect]
     Active Substance: AMPHOTERICIN B
     Indication: SYSTEMIC CANDIDA
  11. FRESH FROZEN PLASMA [Concomitant]
     Active Substance: HUMAN PLASMA
     Indication: PRODUCT USED FOR UNKNOWN INDICATION
     Route: 065

REACTIONS (14)
  - Hepatic necrosis [Unknown]
  - Acute hepatic failure [Recovering/Resolving]
  - Coagulopathy [Fatal]
  - Ischaemic hepatitis [Recovering/Resolving]
  - Haemorrhage intracranial [Unknown]
  - Retroperitoneal haematoma [Unknown]
  - Ophthalmic herpes simplex [Fatal]
  - Shock [Recovering/Resolving]
  - Metabolic acidosis [Unknown]
  - Retroperitoneal haemorrhage [Unknown]
  - Peritoneal haematoma [Unknown]
  - Hyperlactacidaemia [Unknown]
  - Herpes simplex hepatitis [Fatal]
  - Peritoneal haemorrhage [Unknown]
